FAERS Safety Report 8917053 (Version 1)
Quarter: 2012Q4

REPORT INFORMATION
  Report Type: 
  Country: US (occurrence: US)
  Receive Date: 20121120
  Receipt Date: 20121120
  Transmission Date: 20130627
  Serious: Yes (Other)
  Sender: FDA-Public Use
  Company Number: US-JNJFOC-20121107668

PATIENT
  Age: 4 None
  Sex: Male

DRUGS (4)
  1. HALDOL [Suspect]
     Indication: PRODUCT USED FOR UNKNOWN INDICATION
     Route: 065
  2. RISPERDAL [Concomitant]
     Route: 048
  3. ZYPREXA [Concomitant]
     Route: 048
  4. DEPAKOTE [Concomitant]
     Route: 048

REACTIONS (2)
  - Obstructive airways disorder [Unknown]
  - Tremor [Unknown]
